FAERS Safety Report 24262550 (Version 2)
Quarter: 2024Q3

REPORT INFORMATION
  Report Type: Report from Study
  Country: DE (occurrence: DE)
  Receive Date: 20240829
  Receipt Date: 20240925
  Transmission Date: 20241017
  Serious: No
  Sender: ROCHE
  Company Number: DE-ML39632-2275750-0

PATIENT
  Age: 48 Year
  Sex: Female
  Weight: 69 kg

DRUGS (13)
  1. OCREVUS [Suspect]
     Active Substance: OCRELIZUMAB
     Indication: Relapsing multiple sclerosis
     Dosage: MOST RECENT DOSE RECEIVED ON 09-DEC-2021
     Route: 042
     Dates: start: 20211123
  2. Pfitzer- BioNTech COVID-19-Impfstoff [Concomitant]
     Route: 030
     Dates: start: 20210520, end: 20210520
  3. Pfitzer- BioNTech COVID-19-Impfstoff [Concomitant]
     Route: 030
     Dates: start: 20210707, end: 20210707
  4. CICLOPIROX [Concomitant]
     Active Substance: CICLOPIROX
     Dates: start: 202010, end: 202011
  5. EFEROX [Concomitant]
     Active Substance: LEVOTHYROXINE SODIUM
     Indication: Hypothyroidism
     Route: 048
     Dates: start: 202108
  6. CLADRIBINE [Concomitant]
     Active Substance: CLADRIBINE
     Route: 048
     Dates: start: 20200801, end: 20211028
  7. CLOBETASOL [Concomitant]
     Active Substance: CLOBETASOL
     Indication: Lichen sclerosus
     Route: 003
     Dates: start: 202010, end: 20201119
  8. METHYLPREDNISOLONE [Concomitant]
     Active Substance: METHYLPREDNISOLONE
     Dates: start: 202007, end: 202007
  9. ESCITALOPRAM [Concomitant]
     Active Substance: ESCITALOPRAM OXALATE
     Indication: Depression
     Route: 048
     Dates: start: 202006
  10. PANTOPRAZOLE [Concomitant]
     Active Substance: PANTOPRAZOLE
  11. CHOLECALCIFEROL [Concomitant]
     Active Substance: CHOLECALCIFEROL
     Route: 048
  12. METHYLPREDNISOLUT [Concomitant]
     Dates: start: 20210607, end: 20210607
  13. LEVOTHYROXINE [Concomitant]
     Active Substance: LEVOTHYROXINE\LEVOTHYROXINE SODIUM
     Indication: Hypothyroidism
     Route: 048

REACTIONS (1)
  - Erysipelas [Recovered/Resolved]

NARRATIVE: CASE EVENT DATE: 20240801
